FAERS Safety Report 5619654-7 (Version None)
Quarter: 2008Q1

REPORT INFORMATION
  Report Type: 
  Country: None (occurrence: None)
  Receive Date: 20080206
  Receipt Date: 20080122
  Transmission Date: 20080703
  Serious: Yes (Hospitalization)
  Sender: FDA-Public Use
  Company Number: 230841J08USA

PATIENT
  Age: 53 Year
  Sex: Female
  Weight: 70.7611 kg

DRUGS (5)
  1. REBIF [Suspect]
     Indication: MULTIPLE SCLEROSIS
     Dosage: 22 MCG, 3 IN 1 WEEKS, SUBCUTANEOUS
     Route: 058
     Dates: start: 20070501
  2. DETROL [Concomitant]
  3. ALBUTEROL (SALBUTAMOL /00139501/) [Concomitant]
  4. ATROVENT [Concomitant]
  5. VALIUM [Concomitant]

REACTIONS (16)
  - DISORIENTATION [None]
  - DIZZINESS [None]
  - DRUG HYPERSENSITIVITY [None]
  - HEAD INJURY [None]
  - HYPOAESTHESIA FACIAL [None]
  - MIGRAINE [None]
  - MUSCULOSKELETAL CHEST PAIN [None]
  - PNEUMONIA [None]
  - PULMONARY OEDEMA [None]
  - RIB FRACTURE [None]
  - ROAD TRAFFIC ACCIDENT [None]
  - SPEECH DISORDER [None]
  - SWELLING FACE [None]
  - URINARY TRACT INFECTION [None]
  - VITREOUS FLOATERS [None]
  - WHIPLASH INJURY [None]
